FAERS Safety Report 22029596 (Version 1)
Quarter: 2023Q1

REPORT INFORMATION
  Report Type: Spontaneous
  Country: US (occurrence: None)
  Receive Date: 20230221
  Receipt Date: 20230221
  Transmission Date: 20230418
  Serious: Yes (Disabling, Congenital Anomaly)
  Sender: FDA-Public Use
  Company Number: None

PATIENT
  Age: 17 Year
  Sex: Male
  Weight: 50.10 kg

DRUGS (3)
  1. BANZEL [Suspect]
     Active Substance: RUFINAMIDE
     Indication: Neoplasm malignant
     Dosage: FREQUENCY : DAILY;?
     Route: 048
  2. BANZEL [Suspect]
     Active Substance: RUFINAMIDE
     Indication: Cerebral palsy
  3. RUFINAMIDE [Concomitant]

REACTIONS (2)
  - Seizure [None]
  - Product substitution issue [None]
